FAERS Safety Report 19047355 (Version 3)
Quarter: 2021Q2

REPORT INFORMATION
  Report Type: Report from Study
  Country: CA (occurrence: CA)
  Receive Date: 20210323
  Receipt Date: 20210628
  Transmission Date: 20210717
  Serious: Yes (Hospitalization, Other)
  Sender: FDA-Public Use
  Company Number: CA-OTSUKA-2021_009191

PATIENT
  Age: 60 Year
  Sex: Female

DRUGS (1)
  1. CEDAZURIDINE AND DECITABINE [Suspect]
     Active Substance: CEDAZURIDINE\DECITABINE
     Indication: MYELODYSPLASTIC SYNDROME
     Dosage: 135 MG (35 MG OF DECITABINE AND 100 MG OF CEDAZURIDINE), QD 1?5 DAYS EVERY 28 DAY CYCLE
     Route: 048
     Dates: start: 20210315

REACTIONS (4)
  - Pyrexia [Unknown]
  - Pneumonia [Unknown]
  - Febrile neutropenia [Unknown]
  - Transfusion [Unknown]

NARRATIVE: CASE EVENT DATE: 20210315
